FAERS Safety Report 17555818 (Version 4)
Quarter: 2020Q3

REPORT INFORMATION
  Report Type: Spontaneous
  Country: GB (occurrence: GB)
  Receive Date: 20200318
  Receipt Date: 20200717
  Transmission Date: 20201102
  Serious: Yes (Death, Other)
  Sender: FDA-Public Use
  Company Number: GB-PFIZER INC-2020114067

PATIENT
  Age: 72 Year
  Sex: Male

DRUGS (2)
  1. TAZOCIN [Suspect]
     Active Substance: PIPERACILLIN SODIUM\TAZOBACTAM SODIUM
     Dosage: UNK
  2. GENTAMICIN SULFATE. [Suspect]
     Active Substance: GENTAMICIN SULFATE
     Dosage: UNK
     Route: 042
     Dates: start: 20190910

REACTIONS (6)
  - Cardiac arrest [Fatal]
  - Dyspnoea [Fatal]
  - Pulseless electrical activity [Fatal]
  - Contraindicated product administered [Fatal]
  - Hypotension [Fatal]
  - Myoclonus [Fatal]

NARRATIVE: CASE EVENT DATE: 20190911
